FAERS Safety Report 18083119 (Version 2)
Quarter: 2020Q4

REPORT INFORMATION
  Report Type: Spontaneous
  Country: DE (occurrence: DE)
  Receive Date: 20200729
  Receipt Date: 20201028
  Transmission Date: 20210113
  Serious: Yes (Hospitalization)
  Sender: FDA-Public Use
  Company Number: DE-AMGEN-DEUNI2020117253

PATIENT
  Age: 55 Year
  Sex: Male
  Weight: 77 kg

DRUGS (10)
  1. DEXAMETHASON [DEXAMETHASONE] [Concomitant]
     Active Substance: DEXAMETHASONE
     Dosage: 36 MILLIGRAM, PER CYCLE
     Route: 048
     Dates: start: 20190712, end: 20191031
  2. BEVACIZUMAB. [Suspect]
     Active Substance: BEVACIZUMAB
     Indication: NON-SMALL CELL LUNG CANCER
     Dosage: 15 MILLIGRAM/KILOGRAM
     Route: 042
     Dates: start: 20190711
  3. GRANISETRON [Concomitant]
     Active Substance: GRANISETRON
     Dosage: 3 MILLIGRAM, PER CYCLE
     Route: 042
     Dates: start: 20190711, end: 20191028
  4. DEXAMETHASON [DEXAMETHASONE] [Concomitant]
     Active Substance: DEXAMETHASONE
     Dosage: 24 MILLIGRAM, PER CYCLE
     Route: 042
     Dates: start: 20190711, end: 20191028
  5. ATEZOLIZUMAB. [Suspect]
     Active Substance: ATEZOLIZUMAB
     Indication: NON-SMALL CELL LUNG CANCER
     Dosage: 1200 MILLIGRAM
     Route: 042
     Dates: start: 20190711
  6. ALLOPURINOL. [Concomitant]
     Active Substance: ALLOPURINOL
     Dosage: 300 MILLIGRAM, QD
     Route: 048
     Dates: start: 20190711, end: 20191124
  7. RANITIDIN [Concomitant]
     Active Substance: RANITIDINE HYDROCHLORIDE
     Dosage: 50 MILLIGRAM, PER CYCLE
     Route: 042
     Dates: start: 20190711, end: 20191028
  8. PACLITAXEL. [Suspect]
     Active Substance: PACLITAXEL
     Indication: NON-SMALL CELL LUNG CANCER
     Dosage: 175 MILLIGRAM/SQ. METER
     Route: 042
     Dates: start: 20190711
  9. FENISTIL [Concomitant]
     Active Substance: DIMETHINDENE
     Dosage: 4 MILLIGRAM, PER CYCLE
     Route: 042
     Dates: start: 20190711, end: 20191028
  10. CARBOPLATIN. [Suspect]
     Active Substance: CARBOPLATIN
     Indication: NON-SMALL CELL LUNG CANCER
     Dosage: 5 MG/MIN ML
     Route: 042
     Dates: start: 20190711

REACTIONS (2)
  - Hypersensitivity [Recovered/Resolved]
  - Dyspnoea [Recovered/Resolved]

NARRATIVE: CASE EVENT DATE: 20200525
